FAERS Safety Report 4386372-5 (Version None)
Quarter: 2004Q2

REPORT INFORMATION
  Report Type: 
  Country: None (occurrence: None)
  Receive Date: 20040623
  Receipt Date: 20040607
  Transmission Date: 20050107
  Serious: Yes (Other)
  Sender: FDA-Public Use
  Company Number: FR_040604244

PATIENT
  Age: 56 Year
  Sex: Female

DRUGS (1)
  1. RALOXIFENE HCL [Suspect]
     Dosage: 60 MG/1 DAY
     Dates: start: 20040227

REACTIONS (1)
  - HYPERTENSION [None]
